FAERS Safety Report 8224201-X (Version None)
Quarter: 2012Q1

REPORT INFORMATION
  Report Type: 
  Country: None (occurrence: None)
  Receive Date: 20120321
  Receipt Date: 20120307
  Transmission Date: 20120608
  Serious: No
  Sender: FDA-Public Use
  Company Number: US-B.I. PHARMACEUTICALS,INC./RIDGEFIELD-2012-BP-04374BP

PATIENT
  Age: 81 Year
  Sex: Female

DRUGS (4)
  1. CHOLESTEROL POWDER [Concomitant]
     Indication: BLOOD CHOLESTEROL INCREASED
  2. DROPS FOR GLAUCOMA [Concomitant]
     Indication: GLAUCOMA
  3. LOSARTAN POTASSIUM [Concomitant]
     Indication: HYPERTENSION
  4. PRADAXA [Suspect]
     Indication: ATRIAL FIBRILLATION
     Dosage: 300 MG
     Route: 048
     Dates: end: 20120101

REACTIONS (1)
  - EYE DISORDER [None]
